FAERS Safety Report 17075955 (Version 5)
Quarter: 2020Q3

REPORT INFORMATION
  Report Type: Spontaneous
  Country: US (occurrence: US)
  Receive Date: 20191126
  Receipt Date: 20200924
  Transmission Date: 20201102
  Serious: Yes (Hospitalization, Other)
  Sender: FDA-Public Use
  Company Number: US-GILEAD-2019-0439498

PATIENT
  Age: 55 Year
  Sex: Male
  Weight: 70.3 kg

DRUGS (113)
  1. TRUVADA [Concomitant]
     Active Substance: EMTRICITABINE\TENOFOVIR DISOPROXIL FUMARATE
  2. ISENTRESS [Concomitant]
     Active Substance: RALTEGRAVIR POTASSIUM
     Dosage: UNK
     Dates: end: 2013
  3. MUPIROCIN. [Concomitant]
     Active Substance: MUPIROCIN
  4. BACLOFEN. [Concomitant]
     Active Substance: BACLOFEN
  5. FLUTICASONE PROPIONATE. [Concomitant]
     Active Substance: FLUTICASONE PROPIONATE
  6. ANDROGEL [Concomitant]
     Active Substance: TESTOSTERONE
  7. CICLOPIROX. [Concomitant]
     Active Substance: CICLOPIROX
  8. PROMETHAZINE [Concomitant]
     Active Substance: PROMETHAZINE HYDROCHLORIDE
  9. VIIBRYD [Concomitant]
     Active Substance: VILAZODONE HYDROCHLORIDE
  10. CIPRODEX [Concomitant]
     Active Substance: CIPROFLOXACIN HYDROCHLORIDE\DEXAMETHASONE
  11. ACETAMINOPHEN. [Concomitant]
     Active Substance: ACETAMINOPHEN
  12. DEXLANSOPRAZOLE [Concomitant]
     Active Substance: DEXLANSOPRAZOLE
  13. INDINAVIR [Concomitant]
     Active Substance: INDINAVIR
  14. RANITIDINE. [Concomitant]
     Active Substance: RANITIDINE
  15. EPIVIR [Concomitant]
     Active Substance: LAMIVUDINE
  16. PREZISTA [Concomitant]
     Active Substance: DARUNAVIR ETHANOLATE
     Dosage: UNK
     Dates: start: 2017
  17. ULORIC [Concomitant]
     Active Substance: FEBUXOSTAT
     Dosage: UNK
     Dates: start: 20190218
  18. METOPROLOL SUCCINATE. [Concomitant]
     Active Substance: METOPROLOL SUCCINATE
     Dosage: UNK
     Dates: start: 20140203
  19. ISENTRESS [Concomitant]
     Active Substance: RALTEGRAVIR POTASSIUM
     Dosage: UNK
     Dates: start: 2017
  20. KETOCONAZOLE. [Concomitant]
     Active Substance: KETOCONAZOLE
  21. AZITHROMYCIN ANHYDROUS. [Concomitant]
     Active Substance: AZITHROMYCIN ANHYDROUS
  22. VALACYCLOVIR [Concomitant]
     Active Substance: VALACYCLOVIR HYDROCHLORIDE
  23. OXYCODONE HYDROCHLORIDE. [Concomitant]
     Active Substance: OXYCODONE HYDROCHLORIDE
  24. AMMONIUM LACTATE. [Concomitant]
     Active Substance: AMMONIUM LACTATE
  25. BUPRENORPHINE. [Concomitant]
     Active Substance: BUPRENORPHINE
  26. PRAVASTATIN SODIUM. [Concomitant]
     Active Substance: PRAVASTATIN SODIUM
  27. TRIUMEQ [Concomitant]
     Active Substance: ABACAVIR SULFATE\DOLUTEGRAVIR SODIUM\LAMIVUDINE
  28. ESCITALOPRAM [Concomitant]
     Active Substance: ESCITALOPRAM OXALATE
  29. EPZICOM [Concomitant]
     Active Substance: ABACAVIR SULFATE\LAMIVUDINE
     Indication: HIV INFECTION
     Dosage: UNK
     Dates: end: 2013
  30. PROBIOTICS NOS [Concomitant]
     Active Substance: PROBIOTICS NOS
  31. VIRACEPT [Concomitant]
     Active Substance: NELFINAVIR MESYLATE
  32. VIRAMUNE [Concomitant]
     Active Substance: NEVIRAPINE
  33. ZIAGEN [Concomitant]
     Active Substance: ABACAVIR SULFATE
  34. ZERIT [Concomitant]
     Active Substance: STAVUDINE
  35. LAMIVUDINE. [Concomitant]
     Active Substance: LAMIVUDINE
     Dosage: UNK
     Dates: start: 2017
  36. CIPROFLOXACIN. [Concomitant]
     Active Substance: CIPROFLOXACIN
  37. NORDITROPIN [Concomitant]
     Active Substance: SOMATROPIN
  38. REXULTI [Concomitant]
     Active Substance: BREXPIPRAZOLE
  39. CEPHALEXIN [CEFALEXIN] [Concomitant]
     Active Substance: CEPHALEXIN
  40. TRIAMTERENE AND HYDROCHLOROTHIAZIDE [Concomitant]
     Active Substance: HYDROCHLOROTHIAZIDE\TRIAMTERENE
  41. DIPHENOXYLATE HYDROCHLORIDE AND ATROPINE SULFATE [Concomitant]
     Active Substance: ATROPINE SULFATE\DIPHENOXYLATE HYDROCHLORIDE
  42. CHANTIX [Concomitant]
     Active Substance: VARENICLINE TARTRATE
  43. AMLODIPINE BESYLATE. [Concomitant]
     Active Substance: AMLODIPINE BESYLATE
  44. RENVELA [Concomitant]
     Active Substance: SEVELAMER CARBONATE
  45. ACYCLOVIR [ACICLOVIR] [Concomitant]
     Active Substance: ACYCLOVIR
  46. AMITRIPTYLINE [Concomitant]
     Active Substance: AMITRIPTYLINE
  47. CRIXIVAN [Concomitant]
     Active Substance: INDINAVIR SULFATE
  48. EMTRIVA [Concomitant]
     Active Substance: EMTRICITABINE
  49. JULUCA [Concomitant]
     Active Substance: DOLUTEGRAVIR SODIUM\RILPIVIRINE HYDROCHLORIDE
  50. PROAIR HFA [Concomitant]
     Active Substance: ALBUTEROL SULFATE
     Dosage: UNK
     Dates: start: 20190218
  51. FLUBLOK QUADRIVALENT NOS [Concomitant]
     Active Substance: INFLUENZA VIRUS VACCINE
     Dosage: UNK
     Dates: start: 20181105, end: 20181105
  52. TRAZODONE [Concomitant]
     Active Substance: TRAZODONE HYDROCHLORIDE
  53. TRINTELLIX [Concomitant]
     Active Substance: VORTIOXETINE HYDROBROMIDE
  54. BUPROPION HYDROCHLORIDE XL [Concomitant]
     Active Substance: BUPROPION HYDROCHLORIDE
  55. HYDRALAZINE [Concomitant]
     Active Substance: HYDRALAZINE HYDROCHLORIDE
  56. BACTRIM [Concomitant]
     Active Substance: SULFAMETHOXAZOLE\TRIMETHOPRIM
  57. RETROVIR [Concomitant]
     Active Substance: ZIDOVUDINE
  58. SUSTIVA [Concomitant]
     Active Substance: EFAVIRENZ
  59. DEXILANT [Concomitant]
     Active Substance: DEXLANSOPRAZOLE
     Dosage: UNK
     Dates: start: 20190218
  60. NORCO [Concomitant]
     Active Substance: ACETAMINOPHEN\HYDROCODONE BITARTRATE
  61. LIDOCAINE;PRILOCAINE [Concomitant]
  62. SULFAMETHOXAZOLE;TRIMETHOPRIM [Concomitant]
     Active Substance: SULFAMETHOXAZOLE\TRIMETHOPRIM
  63. METHADONE HCL [Concomitant]
     Active Substance: METHADONE HYDROCHLORIDE
  64. FAMOTIDINE. [Concomitant]
     Active Substance: FAMOTIDINE
  65. DOXYCYCLINE HYCLATE. [Concomitant]
     Active Substance: DOXYCYCLINE HYCLATE
  66. TOPIRAMATE. [Concomitant]
     Active Substance: TOPIRAMATE
  67. FLUVIRIN [INFLUENZA VACCINE INACT SAG 3V] [Concomitant]
     Dosage: UNK
     Dates: start: 20131017
  68. LASIX [Concomitant]
     Active Substance: FUROSEMIDE
  69. VIDEX [Concomitant]
     Active Substance: DIDANOSINE
  70. GENVOYA [Concomitant]
     Active Substance: COBICISTAT\ELVITEGRAVIR\EMTRICITABINE\TENOFOVIR ALAFENAMIDE FUMARATE
     Dosage: 1 DOSAGE FORM, QD
     Route: 048
     Dates: start: 201602, end: 2017
  71. NORVIR [Concomitant]
     Active Substance: RITONAVIR
     Dosage: UNK
     Dates: start: 2017
  72. FELODIPINE. [Concomitant]
     Active Substance: FELODIPINE
     Dosage: UNK
     Dates: start: 20131122
  73. ISENTRESS [Concomitant]
     Active Substance: RALTEGRAVIR POTASSIUM
     Dosage: UNK
     Dates: start: 20131122
  74. PREDNISONE. [Concomitant]
     Active Substance: PREDNISONE
  75. CALCITRIOL. [Concomitant]
     Active Substance: CALCITRIOL
  76. LISINOPRIL. [Concomitant]
     Active Substance: LISINOPRIL
  77. EVZIO [Concomitant]
     Active Substance: NALOXONE HYDROCHLORIDE
  78. METHYLPREDNISOLONE. [Concomitant]
     Active Substance: METHYLPREDNISOLONE
  79. NORTRIPTYLINE HCL [Concomitant]
     Active Substance: NORTRIPTYLINE HYDROCHLORIDE
  80. IBUPROFEN. [Concomitant]
     Active Substance: IBUPROFEN
  81. NUVIGIL [Concomitant]
     Active Substance: ARMODAFINIL
  82. INTELENCE [Concomitant]
     Active Substance: ETRAVIRINE
  83. SUPRAX [Concomitant]
     Active Substance: CEFIXIME
  84. ANTIPYRINE;BENZOCAINE [Concomitant]
  85. FLUVIRIN [INFLUENZA VACCINE INACT SAG 3V] [Concomitant]
     Dosage: UNK
     Dates: start: 20141108
  86. DIPHENHYDRAMINE;HYDROCORTISONE;LIDOCAINE;NYSTATIN;TETRACYCLINE [Concomitant]
  87. ASPIRIN [ACETYLSALICYLIC ACID] [Concomitant]
     Active Substance: ASPIRIN
  88. STRIBILD [Suspect]
     Active Substance: COBICISTAT\ELVITEGRAVIR\EMTRICITABINE\TENOFOVIR DISOPROXIL FUMARATE
     Indication: HIV INFECTION
     Dosage: UNK
     Route: 048
     Dates: start: 20130612, end: 20130719
  89. COMPLERA [Suspect]
     Active Substance: EMTRICITABINE\RILPIVIRINE HYDROCHLORIDE\TENOFOVIR DISOPROXIL FUMARATE
     Indication: HIV INFECTION
     Dosage: UNK
     Route: 048
     Dates: start: 201307
  90. GABAPENTIN. [Concomitant]
     Active Substance: GABAPENTIN
     Dosage: UNK
     Dates: start: 20190218
  91. DIAZEPAM. [Concomitant]
     Active Substance: DIAZEPAM
  92. ELIQUIS [Concomitant]
     Active Substance: APIXABAN
  93. ABILIFY [Concomitant]
     Active Substance: ARIPIPRAZOLE
  94. HYDROMORPHONE [Concomitant]
     Active Substance: HYDROMORPHONE
  95. PRISTIQ EXTENDED?RELEASE [Concomitant]
     Active Substance: DESVENLAFAXINE SUCCINATE
  96. ABACAVIR. [Concomitant]
     Active Substance: ABACAVIR
  97. ALLOPURINOL. [Concomitant]
     Active Substance: ALLOPURINOL
  98. LOVAZA [Concomitant]
     Active Substance: OMEGA-3-ACID ETHYL ESTERS
  99. LEVOFLOXACIN. [Concomitant]
     Active Substance: LEVOFLOXACIN
  100. TRICOR [Concomitant]
     Active Substance: FENOFIBRATE
  101. PANTOPRAZOLE SODIUM. [Concomitant]
     Active Substance: PANTOPRAZOLE SODIUM
  102. VIAGRA [Concomitant]
     Active Substance: SILDENAFIL CITRATE
  103. VIREAD [Concomitant]
     Active Substance: TENOFOVIR DISOPROXIL FUMARATE
  104. MYTESI [Concomitant]
     Active Substance: CROFELEMER
  105. MOMETASONE FUROATE. [Concomitant]
     Active Substance: MOMETASONE FUROATE
  106. NALOXONE [Concomitant]
     Active Substance: NALOXONE
  107. TRANSDERM SCOP [Concomitant]
     Active Substance: SCOPOLAMINE
  108. VENLAFAXINE HCL [Concomitant]
     Active Substance: VENLAFAXINE HYDROCHLORIDE
  109. MOVIPREP [Concomitant]
     Active Substance: ASCORBIC ACID\POLYETHYLENE GLYCOL 3350\POTASSIUM CHLORIDE\SODIUM ASCORBATE\SODIUM CHLORIDE\SODIUM SULFATE
  110. OXYCONTIN [Concomitant]
     Active Substance: OXYCODONE HYDROCHLORIDE
  111. FENTANYL. [Concomitant]
     Active Substance: FENTANYL
  112. PANTOPRAZOLE [Concomitant]
     Active Substance: PANTOPRAZOLE
  113. COMBIVIR [Concomitant]
     Active Substance: LAMIVUDINE\ZIDOVUDINE

REACTIONS (12)
  - Anhedonia [Unknown]
  - Osteoporosis [Not Recovered/Not Resolved]
  - Renal tubular necrosis [Unknown]
  - Chronic kidney disease [Not Recovered/Not Resolved]
  - Foot fracture [Unknown]
  - Bone density decreased [Unknown]
  - Acute kidney injury [Not Recovered/Not Resolved]
  - Pain [Unknown]
  - Renal failure [Unknown]
  - Economic problem [Unknown]
  - Emotional distress [Unknown]
  - Anxiety [Unknown]

NARRATIVE: CASE EVENT DATE: 20130717
